FAERS Safety Report 21265676 (Version 1)
Quarter: 2022Q3

REPORT INFORMATION
  Report Type: Spontaneous
  Country: US (occurrence: None)
  Receive Date: 20220828
  Receipt Date: 20220828
  Transmission Date: 20221027
  Serious: Yes (Other)
  Sender: FDA-Public Use
  Company Number: None

PATIENT
  Age: 44 Year
  Sex: Female
  Weight: 54 kg

DRUGS (1)
  1. BACTRIM DS [Suspect]
     Active Substance: SULFAMETHOXAZOLE\TRIMETHOPRIM
     Indication: Urinary tract infection
     Dosage: OTHER QUANTITY : 1 TABLET(S);?FREQUENCY : TWICE A DAY;?
     Route: 048
     Dates: start: 20220821, end: 20220823

REACTIONS (8)
  - Vulvovaginal burning sensation [None]
  - Vulvovaginal pain [None]
  - Loss of personal independence in daily activities [None]
  - Sleep disorder [None]
  - Vulvovaginal swelling [None]
  - Vulvovaginal injury [None]
  - Vulvovaginal erythema [None]
  - Oral disorder [None]

NARRATIVE: CASE EVENT DATE: 20220823
